FAERS Safety Report 4714889-X (Version None)
Quarter: 2005Q3

REPORT INFORMATION
  Report Type: 
  Country: None (occurrence: None)
  Receive Date: 20050713
  Receipt Date: 20050706
  Transmission Date: 20060218
  Serious: Yes (Hospitalization)
  Sender: FDA-Public Use
  Company Number: LTI2005A00121

PATIENT
  Age: 38 Year
  Sex: Female

DRUGS (5)
  1. ACTOS [Suspect]
     Indication: DIABETES MELLITUS NON-INSULIN-DEPENDENT
     Dosage: 30 MG (30 MG, 1 IN 1 D)
     Route: 048
     Dates: start: 20050101, end: 20050301
  2. ATACAND [Concomitant]
  3. DIAMICRON (GLICLAZIDE) [Concomitant]
  4. GLUCOPHAGE [Concomitant]
  5. NOVOMIX (INSULIN ASPART) [Concomitant]

REACTIONS (16)
  - BIOPSY MUSCLE ABNORMAL [None]
  - BLOOD CREATINE PHOSPHOKINASE INCREASED [None]
  - CARDIAC MURMUR [None]
  - CARDIAC SEPTAL DEFECT [None]
  - CONGESTIVE CARDIOMYOPATHY [None]
  - DERMATOMYOSITIS [None]
  - EJECTION FRACTION DECREASED [None]
  - ERYTHEMA NODOSUM [None]
  - GALLOP RHYTHM PRESENT [None]
  - HEPATOMEGALY [None]
  - MICROANGIOPATHY [None]
  - MUSCLE DISORDER [None]
  - OEDEMA PERIPHERAL [None]
  - SEPTAL PANNICULITIS [None]
  - VENTRICULAR DYSFUNCTION [None]
  - VENTRICULAR HYPOKINESIA [None]
